FAERS Safety Report 18777870 (Version 7)
Quarter: 2022Q2

REPORT INFORMATION
  Report Type: Spontaneous
  Country: US (occurrence: US)
  Receive Date: 20210122
  Receipt Date: 20220412
  Transmission Date: 20220721
  Serious: Yes (Hospitalization, Other)
  Sender: FDA-Public Use
  Company Number: US-SEATTLE GENETICS-2020SGN03432

PATIENT
  Age: 57 Year
  Sex: Female

DRUGS (10)
  1. TUKYSA [Suspect]
     Active Substance: TUCATINIB
     Indication: Breast cancer female
     Dosage: UNK, BID
     Route: 065
  2. TUKYSA [Suspect]
     Active Substance: TUCATINIB
     Dosage: UNK
     Route: 065
  3. TUKYSA [Suspect]
     Active Substance: TUCATINIB
     Dosage: UNK
     Route: 065
  4. TUKYSA [Suspect]
     Active Substance: TUCATINIB
     Dosage: UNK
     Route: 065
  5. TUKYSA [Suspect]
     Active Substance: TUCATINIB
     Dosage: UNK
     Route: 065
  6. TUKYSA [Suspect]
     Active Substance: TUCATINIB
     Dosage: UNK
     Route: 065
  7. TUKYSA [Suspect]
     Active Substance: TUCATINIB
     Dosage: UNK
     Route: 065
  8. TUKYSA [Suspect]
     Active Substance: TUCATINIB
     Dosage: UNK
     Route: 065
  9. XELODA [Concomitant]
     Active Substance: CAPECITABINE
     Indication: Breast cancer female
     Route: 065
  10. HERCEPTIN [Concomitant]
     Active Substance: TRASTUZUMAB
     Indication: Breast cancer female
     Route: 065

REACTIONS (13)
  - Hospitalisation [Unknown]
  - Brain neoplasm [Unknown]
  - Brain neoplasm [Unknown]
  - Intestinal obstruction [Unknown]
  - Flatulence [Unknown]
  - Dyspepsia [Unknown]
  - Haematocrit decreased [Unknown]
  - Product dose omission issue [Unknown]
  - Muscle spasms [Unknown]
  - Product dose omission in error [Unknown]
  - Ingrowing nail [Unknown]
  - Diarrhoea [Not Recovered/Not Resolved]
  - Vomiting [Unknown]

NARRATIVE: CASE EVENT DATE: 20210901
